FAERS Safety Report 18851296 (Version 1)
Quarter: 2021Q1

REPORT INFORMATION
  Report Type: Spontaneous
  Country: US (occurrence: US)
  Receive Date: 20210205
  Receipt Date: 20210205
  Transmission Date: 20210420
  Serious: Yes (Other)
  Sender: FDA-Public Use
  Company Number: US-JNJFOC-20210204124

PATIENT

DRUGS (1)
  1. NEUTROGENA TGEL THERAPEUTIC [Suspect]
     Active Substance: COAL TAR
     Indication: PRODUCT USED FOR UNKNOWN INDICATION
     Route: 061

REACTIONS (5)
  - Accidental exposure to product [Unknown]
  - Hair injury [Unknown]
  - Product odour abnormal [Unknown]
  - Blindness transient [Unknown]
  - Skin odour abnormal [Unknown]
